FAERS Safety Report 6697755-2 (Version None)
Quarter: 2010Q2

REPORT INFORMATION
  Report Type: 
  Country: None (occurrence: None)
  Receive Date: 20100423
  Receipt Date: 20100416
  Transmission Date: 20101027
  Serious: Yes (Life-Threatening)
  Sender: FDA-Public Use
  Company Number: 1000013204

PATIENT
  Age: 47 Year
  Sex: Female
  Weight: 46 kg

DRUGS (7)
  1. ESCITALOPRAM [Suspect]
     Indication: FIBROMYALGIA
     Dosage: 20 MG (20 MG, 1 IN 1 D), ORAL
     Route: 048
     Dates: start: 20080211, end: 20091001
  2. INIPOMP [Concomitant]
  3. XANAX [Concomitant]
  4. IMOVANE [Concomitant]
  5. PANOS [Concomitant]
  6. TAKADOL [Concomitant]
  7. DAFALGAN [Concomitant]

REACTIONS (3)
  - MALAISE [None]
  - OFF LABEL USE [None]
  - TORSADE DE POINTES [None]
